FAERS Safety Report 5874640-7 (Version None)
Quarter: 2008Q3

REPORT INFORMATION
  Report Type: 
  Country: None (occurrence: None)
  Receive Date: 20080908
  Receipt Date: 20080908
  Transmission Date: 20090109
  Serious: Yes (Life-Threatening, Hospitalization)
  Sender: FDA-Public Use
  Company Number: None

PATIENT
  Age: 61 Year
  Sex: Male

DRUGS (1)
  1. NOVOSEVEN [Suspect]
     Indication: COAGULOPATHY
     Dosage: 6000 MCG ONCE INTRACAVERNOUS  1 DOSE
     Route: 017

REACTIONS (1)
  - MYOCARDIAL INFARCTION [None]
